FAERS Safety Report 23505982 (Version 1)
Quarter: 2024Q1

REPORT INFORMATION
  Report Type: Spontaneous
  Country: US (occurrence: None)
  Receive Date: 20240208
  Receipt Date: 20240208
  Transmission Date: 20240409
  Serious: No
  Sender: FDA-Public Use
  Company Number: None

PATIENT
  Age: 40 Year
  Sex: Female

DRUGS (7)
  1. ZEPBOUND [Suspect]
     Active Substance: TIRZEPATIDE
     Indication: Obesity
     Dosage: OTHER QUANTITY : 4 INJECTION(S);?OTHER FREQUENCY : ONCE A WEEK;?
     Route: 058
     Dates: start: 20240129, end: 20240204
  2. Sertriline [Concomitant]
  3. BUSPIRONE [Concomitant]
     Active Substance: BUSPIRONE HYDROCHLORIDE
  4. TRAZODONE [Concomitant]
     Active Substance: TRAZODONE HYDROCHLORIDE
  5. Rovistatin [Concomitant]
  6. Chlonodine [Concomitant]
  7. hair skin and nails vitamins [Concomitant]

REACTIONS (4)
  - Drug level increased [None]
  - Seizure [None]
  - Tremor [None]
  - Adverse drug reaction [None]

NARRATIVE: CASE EVENT DATE: 20240204
